FAERS Safety Report 4306100-9 (Version None)
Quarter: 2004Q1

REPORT INFORMATION
  Report Type: 
  Country: None (occurrence: None)
  Receive Date: 20040225
  Receipt Date: 20030127
  Transmission Date: 20041129
  Serious: No
  Sender: FDA-Public Use
  Company Number: US-BRISTOL-MYERS SQUIBB COMPANY-12184784

PATIENT
  Age: 36 Year
  Sex: Male
  Weight: 63 kg

DRUGS (1)
  1. EXCEDRIN ES TABS [Suspect]
     Indication: POST PROCEDURAL PAIN
     Route: 048
     Dates: start: 20030124

REACTIONS (3)
  - DYSPEPSIA [None]
  - HEADACHE [None]
  - NAUSEA [None]
